FAERS Safety Report 18408265 (Version 1)
Quarter: 2020Q4

REPORT INFORMATION
  Report Type: Report from Study
  Country: JP (occurrence: JP)
  Receive Date: 20201021
  Receipt Date: 20201021
  Transmission Date: 20210114
  Serious: Yes (Hospitalization)
  Sender: FDA-Public Use
  Company Number: JP-AMGEN-JPNCT2020168124

PATIENT
  Age: 60 Year
  Sex: Female

DRUGS (5)
  1. CYCLOPHOSPHAMIDE. [Concomitant]
     Active Substance: CYCLOPHOSPHAMIDE
     Indication: BREAST CANCER STAGE I
     Dosage: UNK, 1X/3 WEEKS
     Route: 041
     Dates: start: 201910, end: 201912
  2. CARBOPLATIN. [Concomitant]
     Active Substance: CARBOPLATIN
     Indication: BREAST CANCER STAGE I
     Dosage: UNK
     Route: 041
     Dates: start: 201907, end: 201910
  3. EPIRUBICIN HYDROCHLORIDE. [Concomitant]
     Active Substance: EPIRUBICIN HYDROCHLORIDE
     Indication: BREAST CANCER STAGE I
     Dosage: UNK, 1X/3 WEEKS
     Route: 041
     Dates: start: 201910, end: 201912
  4. PACLITAXEL. [Concomitant]
     Active Substance: PACLITAXEL
     Indication: BREAST CANCER STAGE I
     Dosage: UNK
     Route: 041
     Dates: start: 201907, end: 201910
  5. G-LASTA [Suspect]
     Active Substance: PEGFILGRASTIM
     Indication: PRODUCT USED FOR UNKNOWN INDICATION
     Dosage: UNK
     Route: 058
     Dates: start: 201910

REACTIONS (2)
  - Chest pain [Recovering/Resolving]
  - Interstitial lung disease [Unknown]
